FAERS Safety Report 7348290-X (Version None)
Quarter: 2011Q1

REPORT INFORMATION
  Report Type: 
  Country: None (occurrence: None)
  Receive Date: 20110311
  Receipt Date: 20110228
  Transmission Date: 20110831
  Serious: Yes (Other)
  Sender: FDA-Public Use
  Company Number: US-TEVA-269314USA

PATIENT
  Age: 23 Year
  Sex: Female

DRUGS (3)
  1. ERYTHROMYCIN [Concomitant]
  2. AMPICILLIN [Concomitant]
  3. BETAMETHASONE VALERATE 0.1% CREAM [Suspect]
     Indication: FOETAL GROWTH RESTRICTION

REACTIONS (2)
  - HYPOKALAEMIA [None]
  - PARALYSIS [None]
